FAERS Safety Report 4435848-0 (Version None)
Quarter: 2004Q3

REPORT INFORMATION
  Report Type: 
  Country: None (occurrence: None)
  Receive Date: 20040726
  Receipt Date: 20040415
  Transmission Date: 20050211
  Serious: No
  Sender: FDA-Public Use
  Company Number: USA040465010

PATIENT
  Age: 71 Year
  Sex: Female
  Weight: 60 kg

DRUGS (8)
  1. FORTEO [Suspect]
     Dates: start: 20030509
  2. TRICOR [Concomitant]
  3. LEVOXYL [Concomitant]
  4. ATENOLOL [Concomitant]
  5. FAMVIR [Concomitant]
  6. ENDOCET [Concomitant]
  7. MIACALCIN [Concomitant]
  8. ACTONEL [Concomitant]

REACTIONS (3)
  - BONE DENSITY DECREASED [None]
  - DISCOMFORT [None]
  - HERPES ZOSTER [None]
